FAERS Safety Report 4550965-2 (Version None)
Quarter: 2004Q4

REPORT INFORMATION
  Report Type: 
  Country: None (occurrence: None)
  Receive Date: 20041217
  Receipt Date: 20040913
  Transmission Date: 20050328
  Serious: No
  Sender: FDA-Public Use
  Company Number: 2004-BP-08240BP

PATIENT
  Sex: Male

DRUGS (13)
  1. SPIRIVA [Suspect]
     Indication: CHRONIC OBSTRUCTIVE AIRWAYS DISEASE
     Dosage: 18 MCG (18 MCG), IH
     Route: 055
     Dates: start: 20040701
  2. SPIRIVA [Suspect]
     Indication: DYSPNOEA
  3. ALTACE [Concomitant]
  4. COREG [Concomitant]
  5. HYDROCHLOROTHIAZIDE [Concomitant]
  6. DITROPAN [Concomitant]
  7. DIGOXIN [Concomitant]
  8. PLAVIX [Concomitant]
  9. ASPIRIN [Concomitant]
  10. BEANO (ALPHA-D-GALACTOSIDASE) [Concomitant]
  11. ROGAINE [Concomitant]
  12. VITAMINS (VITAMINS) [Concomitant]
  13. MUCINEX (GUAIFENESIN) [Concomitant]

REACTIONS (1)
  - DYSPNOEA EXACERBATED [None]
